FAERS Safety Report 7682002-5 (Version None)
Quarter: 2011Q3

REPORT INFORMATION
  Report Type: 
  Country: None (occurrence: None)
  Receive Date: 20110804
  Receipt Date: 20110720
  Transmission Date: 20111222
  Serious: Yes (Death, Other)
  Sender: FDA-Public Use
  Company Number: 2011MA009204

PATIENT
  Age: 17 Year
  Sex: Male

DRUGS (2)
  1. TRAMADOL HYDROCHLORIDE [Suspect]
     Indication: OVERDOSE
  2. CETIRIZINE HCL [Suspect]
     Indication: OVERDOSE

REACTIONS (6)
  - RESPIRATORY DEPRESSION [None]
  - PULMONARY OEDEMA [None]
  - COMPLETED SUICIDE [None]
  - FOAMING AT MOUTH [None]
  - RESPIRATORY FAILURE [None]
  - INTENTIONAL OVERDOSE [None]
